FAERS Safety Report 6611288-0 (Version None)
Quarter: 2010Q1

REPORT INFORMATION
  Report Type: 
  Country: None (occurrence: None)
  Receive Date: 20100301
  Receipt Date: 20100301
  Transmission Date: 20100710
  Serious: Yes (Other)
  Sender: FDA-Public Use
  Company Number: None

PATIENT
  Age: 64 Year
  Sex: Male
  Weight: 78.0187 kg

DRUGS (1)
  1. DOXYCYCLINE HYCLATE [Suspect]
     Indication: CYSTITIS
     Dosage: 100 MG MORN EVE TWICE/DAY 10 DAYS ORAL
     Route: 048
     Dates: start: 20100201, end: 20100211

REACTIONS (4)
  - ACTIVITIES OF DAILY LIVING IMPAIRED [None]
  - DIARRHOEA [None]
  - FLATULENCE [None]
  - MUSCLE SPASMS [None]
